FAERS Safety Report 9252914 (Version 3)
Quarter: 2013Q2

REPORT INFORMATION
  Report Type: Spontaneous
  Country: JP (occurrence: JP)
  Receive Date: 20130424
  Receipt Date: 20130610
  Transmission Date: 20140414
  Serious: Yes (Hospitalization)
  Sender: FDA-Public Use
  Company Number: JP-ASTRAZENECA-2013SE27381

PATIENT
  Sex: 0

DRUGS (8)
  1. SEROQUEL [Suspect]
     Indication: DEMENTIA WITH LEWY BODIES
     Route: 048
  2. DONEPEZIL [Concomitant]
     Route: 048
  3. LIPITOR [Concomitant]
  4. MARZULENE-S [Concomitant]
  5. EDIROL [Concomitant]
  6. WARFARIN [Concomitant]
     Route: 048
  7. MASHININGAN [Concomitant]
     Route: 048
  8. BONALON [Concomitant]

REACTIONS (2)
  - Musculoskeletal stiffness [Recovered/Resolved]
  - Off label use [Unknown]
